FAERS Safety Report 24880338 (Version 3)
Quarter: 2025Q1

REPORT INFORMATION
  Report Type: Spontaneous
  Country: US (occurrence: US)
  Receive Date: 20250123
  Receipt Date: 20250217
  Transmission Date: 20250409
  Serious: Yes (Other)
  Sender: PFIZER
  Company Number: US-PFIZER INC-202500013903

PATIENT
  Age: 78 Year
  Sex: Male

DRUGS (10)
  1. VYNDAMAX [Suspect]
     Active Substance: TAFAMIDIS
     Indication: Cardiac amyloidosis
     Dosage: 61 MG, 1X/DAY
     Route: 048
  2. VYNDAMAX [Suspect]
     Active Substance: TAFAMIDIS
     Indication: Cardiomyopathy
  3. VYNDAMAX [Suspect]
     Active Substance: TAFAMIDIS
     Indication: Chronic kidney disease
  4. VYNDAMAX [Suspect]
     Active Substance: TAFAMIDIS
     Indication: Ischaemic cardiomyopathy
  5. VYNDAMAX [Suspect]
     Active Substance: TAFAMIDIS
     Indication: Angina pectoris
  6. VYNDAMAX [Suspect]
     Active Substance: TAFAMIDIS
     Indication: Liver function test abnormal
  7. VYNDAMAX [Suspect]
     Active Substance: TAFAMIDIS
     Indication: Liver disorder
  8. VYNDAMAX [Suspect]
     Active Substance: TAFAMIDIS
     Indication: Cardiac failure congestive
  9. CLOPIDOGREL [Concomitant]
     Active Substance: CLOPIDOGREL BISULFATE
  10. ELIQUIS [Concomitant]
     Active Substance: APIXABAN

REACTIONS (6)
  - Thrombocytopenia [Unknown]
  - Anaemia [Unknown]
  - Monoclonal gammopathy [Unknown]
  - Dizziness [Not Recovered/Not Resolved]
  - Hypotension [Not Recovered/Not Resolved]
  - Weight decreased [Not Recovered/Not Resolved]
